FAERS Safety Report 15690665 (Version 1)
Quarter: 2018Q4

REPORT INFORMATION
  Report Type: Spontaneous
  Country: GB (occurrence: GB)
  Receive Date: 20181205
  Receipt Date: 20181205
  Transmission Date: 20190205
  Serious: Yes (Life-Threatening, Other)
  Sender: FDA-Public Use
  Company Number: GB-TEVA-2018-GB-981873

PATIENT
  Age: 51 Year
  Sex: Male
  Weight: 78 kg

DRUGS (6)
  1. NAPROXEN. [Concomitant]
     Active Substance: NAPROXEN
     Dosage: 2 DOSAGE FORMS DAILY; WITH OR JUST AFTER FOOD.
     Route: 065
     Dates: start: 20180820, end: 20181022
  2. OMEPRAZOLE. [Concomitant]
     Active Substance: OMEPRAZOLE
     Dosage: 1 DOSAGE FORMS DAILY;
     Route: 065
     Dates: start: 20180810, end: 20181022
  3. CODEINE PHOSPHATE [Concomitant]
     Active Substance: CODEINE PHOSPHATE
     Dosage: THREE TO FOUR TIMES A DAY WHEN REQUIRED.
     Route: 065
     Dates: start: 20180820
  4. ETODOLAC. [Concomitant]
     Active Substance: ETODOLAC
     Dosage: 1 DOSAGE FORMS DAILY;
     Route: 065
     Dates: start: 20180815, end: 20181022
  5. SIMVASTATIN. [Concomitant]
     Active Substance: SIMVASTATIN
     Dosage: 1 DOSAGE FORMS DAILY; AT NIGHT.
     Route: 065
     Dates: start: 20180810, end: 20181022
  6. PHENOXYMETHYLPENICILLIN [Suspect]
     Active Substance: PENICILLIN V
     Route: 065
     Dates: start: 20181104

REACTIONS (1)
  - Angioedema [Recovered/Resolved]

NARRATIVE: CASE EVENT DATE: 20181104
